FAERS Safety Report 13497627 (Version 2)
Quarter: 2017Q2

REPORT INFORMATION
  Report Type: Spontaneous
  Country: US (occurrence: US)
  Receive Date: 20170428
  Receipt Date: 20170505
  Transmission Date: 20170830
  Serious: Yes (Other)
  Sender: FDA-Public Use
  Company Number: US-PFIZER INC-2017187625

PATIENT
  Age: 71 Year
  Sex: Female
  Weight: 45 kg

DRUGS (1)
  1. CHANTIX [Suspect]
     Active Substance: VARENICLINE TARTRATE
     Indication: SMOKING CESSATION THERAPY
     Dosage: ONLY ONE FROM STARTER PACK
     Route: 048
     Dates: start: 20170419, end: 20170419

REACTIONS (3)
  - Dyspnoea [Unknown]
  - Musculoskeletal stiffness [Unknown]
  - Seasonal allergy [Unknown]

NARRATIVE: CASE EVENT DATE: 201704
